FAERS Safety Report 6436620-2 (Version None)
Quarter: 2009Q4

REPORT INFORMATION
  Report Type: 
  Country: None (occurrence: None)
  Receive Date: 20091111
  Receipt Date: 20091030
  Transmission Date: 20100525
  Serious: Yes (Hospitalization)
  Sender: FDA-Public Use
  Company Number: US-ELI_LILLY_AND_COMPANY-US200911000107

PATIENT
  Sex: Male

DRUGS (2)
  1. FORTEO [Suspect]
     Dates: start: 20070501
  2. VITAMIN D [Concomitant]

REACTIONS (2)
  - HIP ARTHROPLASTY [None]
  - OFF LABEL USE [None]
